FAERS Safety Report 10047469 (Version 2)
Quarter: 2014Q2

REPORT INFORMATION
  Report Type: Report from Study
  Country: DE (occurrence: DE)
  Receive Date: 20140331
  Receipt Date: 20140515
  Transmission Date: 20141212
  Serious: Yes (Death, Hospitalization, Other)
  Sender: FDA-Public Use
  Company Number: DE-ASTELLAS-2014US003171

PATIENT
  Age: 64 Year
  Sex: Female

DRUGS (4)
  1. ERLOTINIB [Suspect]
     Indication: PANCREATIC CARCINOMA
     Route: 048
     Dates: start: 20140225, end: 20140327
  2. GEMCITABINE                        /01215702/ [Suspect]
     Indication: PANCREATIC CARCINOMA
     Dosage: 860 MG/M2, 1 IN 1 CYCLICAL
     Route: 042
     Dates: start: 20140225, end: 20140330
  3. MORPHINE [Concomitant]
     Indication: PAIN
     Route: 048
     Dates: start: 20121114
  4. LORAZEPAM [Concomitant]
     Indication: SEDATION
     Dosage: 0.5 MG, AS NEEDED
     Route: 048
     Dates: start: 20140220

REACTIONS (3)
  - Haemoglobin decreased [Recovered/Resolved]
  - General physical health deterioration [Recovered/Resolved]
  - Malignant neoplasm progression [Fatal]
